FAERS Safety Report 5166150-X (Version None)
Quarter: 2006Q4

REPORT INFORMATION
  Report Type: 
  Country: None (occurrence: None)
  Receive Date: 20061129
  Receipt Date: 20061116
  Transmission Date: 20070319
  Serious: Yes (Other)
  Sender: FDA-Public Use
  Company Number: 2006144335

PATIENT
  Age: 66 Year
  Sex: Female
  Weight: 70.7611 kg

DRUGS (7)
  1. LIPITOR [Suspect]
     Indication: BLOOD CHOLESTEROL INCREASED
  2. XALATAN [Suspect]
     Indication: GLAUCOMA
  3. PREDNISONE TAB [Concomitant]
  4. WARFARIN SODIUM [Concomitant]
  5. ZETIA [Concomitant]
  6. OXYCODONE HCL [Concomitant]
  7. CALCIUM         (CALCIUM) [Concomitant]

REACTIONS (4)
  - ABASIA [None]
  - MUSCULAR WEAKNESS [None]
  - MYALGIA [None]
  - MYOPATHY [None]
